FAERS Safety Report 7247428-2 (Version None)
Quarter: 2011Q1

REPORT INFORMATION
  Report Type: 
  Country: None (occurrence: None)
  Receive Date: 20110127
  Receipt Date: 20110119
  Transmission Date: 20110831
  Serious: Yes (Death, Hospitalization)
  Sender: FDA-Public Use
  Company Number: PHHY2011US05504

PATIENT
  Sex: Male

DRUGS (3)
  1. EXJADE [Suspect]
     Dosage: 500 MG, UNK
  2. METHOTREXATE [Interacting]
  3. ENBREL [Interacting]

REACTIONS (2)
  - BONE MARROW FAILURE [None]
  - APLASIA PURE RED CELL [None]
